FAERS Safety Report 8327660-7 (Version None)
Quarter: 2012Q2

REPORT INFORMATION
  Report Type: 
  Country: None (occurrence: None)
  Receive Date: 20120502
  Receipt Date: 20120420
  Transmission Date: 20120825
  Serious: Yes (Other)
  Sender: FDA-Public Use
  Company Number: BR-SANOFI-AVENTIS-2011SA016178

PATIENT
  Age: 24 Year
  Sex: Female
  Weight: 48 kg

DRUGS (4)
  1. FOLIC ACID [Concomitant]
  2. ENOXAPARIN SODIUM [Suspect]
     Indication: THROMBOSIS
     Route: 058
     Dates: start: 20110201
  3. MATERNA [Concomitant]
  4. ENOXAPARIN SODIUM [Suspect]
     Indication: FACTOR V LEIDEN MUTATION
     Route: 058
     Dates: start: 20110201

REACTIONS (2)
  - MATERNAL EXPOSURE DURING PREGNANCY [None]
  - MASTITIS [None]
